FAERS Safety Report 20697322 (Version 2)
Quarter: 2022Q2

REPORT INFORMATION
  Report Type: Spontaneous
  Country: GB (occurrence: GB)
  Receive Date: 20220411
  Receipt Date: 20220525
  Transmission Date: 20220720
  Serious: Yes (Death, Hospitalization, Other)
  Sender: FDA-Public Use
  Company Number: GB-MHRA-MED-202204061424506160-OLUSU

PATIENT
  Age: 79 Year
  Sex: Female
  Weight: 62 kg

DRUGS (2)
  1. INDAPAMIDE [Suspect]
     Active Substance: INDAPAMIDE
     Indication: Hypertension
     Dosage: 2.5 MILLIGRAM, QD, ONCE A DAY
     Dates: start: 2019
  2. INDAPAMIDE [Suspect]
     Active Substance: INDAPAMIDE
     Indication: Joint swelling

REACTIONS (4)
  - Hypokalaemia [Fatal]
  - Cardiac arrest [Fatal]
  - Brain injury [Fatal]
  - Medication error [Unknown]

NARRATIVE: CASE EVENT DATE: 20210423
